FAERS Safety Report 12967986 (Version 1)
Quarter: 2016Q4

REPORT INFORMATION
  Report Type: Report from Study
  Country: US (occurrence: US)
  Receive Date: 20161123
  Receipt Date: 20161123
  Transmission Date: 20170207
  Serious: Yes (Other)
  Sender: FDA-Public Use
  Company Number: US-BAYER-2015-021306

PATIENT
  Age: 70 Year
  Sex: Female
  Weight: 79.37 kg

DRUGS (19)
  1. ADEMPAS [Suspect]
     Active Substance: RIOCIGUAT
     Indication: PULMONARY HYPERTENSION
     Dosage: 1.5 MG, TID
     Route: 048
  2. PRIMIDONE. [Concomitant]
     Active Substance: PRIMIDONE
  3. ADEMPAS [Suspect]
     Active Substance: RIOCIGUAT
     Indication: PULMONARY HYPERTENSION
     Dosage: 2.5 MG, TID
     Route: 048
  4. WARFARIN [Concomitant]
     Active Substance: WARFARIN
  5. TOPAMAX [Concomitant]
     Active Substance: TOPIRAMATE
  6. ADEMPAS [Suspect]
     Active Substance: RIOCIGUAT
     Indication: PULMONARY HYPERTENSION
     Dosage: 2.5 MG, TID
     Route: 048
  7. LITHIUM. [Concomitant]
     Active Substance: LITHIUM
  8. RISPERDAL [Concomitant]
     Active Substance: RISPERIDONE
  9. ADEMPAS [Suspect]
     Active Substance: RIOCIGUAT
     Indication: PULMONARY ARTERIAL HYPERTENSION
     Dosage: 1 MG, TID
     Route: 048
  10. ADEMPAS [Suspect]
     Active Substance: RIOCIGUAT
     Indication: PULMONARY HYPERTENSION
     Dosage: 2.5 MG, TID
     Route: 048
  11. COUMADIN [Concomitant]
     Active Substance: WARFARIN SODIUM
  12. ADEMPAS [Suspect]
     Active Substance: RIOCIGUAT
     Indication: PULMONARY HYPERTENSION
     Dosage: 2.5 MG, TID
     Route: 048
  13. LETAIRIS [Concomitant]
     Active Substance: AMBRISENTAN
     Indication: EMBOLISM
     Dosage: 10 MG, QD
     Dates: start: 20110801
  14. RESTORIL [Concomitant]
     Active Substance: TEMAZEPAM
  15. CARBAMAZEPINE. [Concomitant]
     Active Substance: CARBAMAZEPINE
  16. PROTONIX [Concomitant]
     Active Substance: PANTOPRAZOLE SODIUM
  17. ADEMPAS [Suspect]
     Active Substance: RIOCIGUAT
     Indication: PULMONARY HYPERTENSION
     Dosage: 0.5 MG, TID
     Route: 048
     Dates: start: 20150123
  18. ADEMPAS [Suspect]
     Active Substance: RIOCIGUAT
     Indication: PULMONARY HYPERTENSION
     Dosage: 2 MG, TID
     Route: 048
  19. ADEMPAS [Suspect]
     Active Substance: RIOCIGUAT
     Indication: PULMONARY HYPERTENSION
     Dosage: 2.5 MG, TID
     Route: 048

REACTIONS (23)
  - Neuropathy peripheral [Unknown]
  - Diarrhoea [Unknown]
  - Fall [None]
  - Upper-airway cough syndrome [None]
  - Nasal congestion [None]
  - Oedema peripheral [None]
  - Oxygen supplementation [Recovering/Resolving]
  - Foot fracture [None]
  - Pain in extremity [None]
  - Peripheral swelling [None]
  - Rhinorrhoea [Unknown]
  - Back pain [None]
  - Constipation [None]
  - Nasopharyngitis [None]
  - Constipation [Unknown]
  - Nasopharyngitis [Unknown]
  - International normalised ratio abnormal [None]
  - Flatulence [Unknown]
  - Joint swelling [None]
  - Diarrhoea [Not Recovered/Not Resolved]
  - Gastrointestinal disorder [Unknown]
  - Cough [None]
  - Hypotension [None]

NARRATIVE: CASE EVENT DATE: 2015
